FAERS Safety Report 18093617 (Version 2)
Quarter: 2020Q4

REPORT INFORMATION
  Report Type: Spontaneous
  Country: FR (occurrence: FR)
  Receive Date: 20200730
  Receipt Date: 20201015
  Transmission Date: 20210113
  Serious: Yes (Hospitalization)
  Sender: FDA-Public Use
  Company Number: FR-MYLANLABS-2020M1067229

PATIENT
  Age: 64 Year
  Sex: Female

DRUGS (3)
  1. ETOPOSIDE. [Suspect]
     Active Substance: ETOPOSIDE
     Indication: COLON CANCER
     Dosage: UNK INCONNUE
     Route: 042
     Dates: start: 20200625, end: 20200625
  2. CISPLATIN. [Concomitant]
     Active Substance: CISPLATIN
     Indication: COLON CANCER
     Dosage: UNK INCONNUE
     Route: 042
     Dates: start: 20200625, end: 20200625
  3. ZOPHREN                            /00955302/ [Suspect]
     Active Substance: ONDANSETRON
     Indication: PROPHYLAXIS OF NAUSEA AND VOMITING
     Dosage: UNK INCONNUE
     Route: 065
     Dates: end: 20200526

REACTIONS (1)
  - Angioedema [Recovered/Resolved]

NARRATIVE: CASE EVENT DATE: 20200625
